FAERS Safety Report 7058417-5 (Version None)
Quarter: 2010Q4

REPORT INFORMATION
  Report Type: 
  Country: None (occurrence: None)
  Receive Date: 20101022
  Receipt Date: 20101018
  Transmission Date: 20110411
  Serious: No
  Sender: FDA-Public Use
  Company Number: US-PFIZER INC-2010132817

PATIENT
  Sex: Female

DRUGS (1)
  1. NICOTROL [Suspect]
     Indication: SMOKING CESSATION THERAPY
     Dosage: 10 MG/ML, UNK
     Route: 045
     Dates: start: 20101016

REACTIONS (4)
  - APPLICATION SITE IRRITATION [None]
  - NASAL DISCOMFORT [None]
  - RHINORRHOEA [None]
  - SNEEZING [None]
